FAERS Safety Report 7305089-8 (Version None)
Quarter: 2011Q1

REPORT INFORMATION
  Report Type: 
  Country: None (occurrence: None)
  Receive Date: 20110222
  Receipt Date: 20110211
  Transmission Date: 20110831
  Serious: Yes (Hospitalization, Other)
  Sender: FDA-Public Use
  Company Number: US-ASTRAZENECA-2010SE57858

PATIENT
  Age: 64 Year
  Sex: Male

DRUGS (3)
  1. NEXIUM [Suspect]
     Route: 048
  2. OTHER MEDICATIONS [Interacting]
     Route: 065
  3. PRILOSEC OTC [Interacting]
     Route: 048

REACTIONS (12)
  - EYE DISCHARGE [None]
  - EYELID FUNCTION DISORDER [None]
  - EYE INFECTION [None]
  - DRUG INTERACTION [None]
  - DRUG INEFFECTIVE [None]
  - VOCAL CORD DISORDER [None]
  - MALAISE [None]
  - VISION BLURRED [None]
  - SURGERY [None]
  - NASOPHARYNGITIS [None]
  - DRUG DOSE OMISSION [None]
  - HYPERSENSITIVITY [None]
